FAERS Safety Report 13072879 (Version 1)
Quarter: 2016Q4

REPORT INFORMATION
  Report Type: Spontaneous
  Country: US (occurrence: US)
  Receive Date: 20161229
  Receipt Date: 20161229
  Transmission Date: 20170207
  Serious: Yes (Other)
  Sender: FDA-Public Use
  Company Number: US-SA-2016SA215017

PATIENT
  Sex: Female

DRUGS (2)
  1. TAXOTERE [Suspect]
     Active Substance: DOCETAXEL
     Indication: BREAST CANCER FEMALE
     Route: 065
     Dates: start: 20140205, end: 20140205
  2. TAXOTERE [Suspect]
     Active Substance: DOCETAXEL
     Indication: BREAST CANCER FEMALE
     Route: 065
     Dates: start: 20140520, end: 20140520

REACTIONS (5)
  - Anxiety [Unknown]
  - Alopecia [Unknown]
  - Emotional distress [Unknown]
  - Pain [Unknown]
  - Injury [Unknown]
